FAERS Safety Report 8610901-6 (Version None)
Quarter: 2012Q3

REPORT INFORMATION
  Report Type: 
  Country: None (occurrence: None)
  Receive Date: 20120802
  Receipt Date: 20120720
  Transmission Date: 20120928
  Serious: Yes (Other)
  Sender: FDA-Public Use
  Company Number: US-1190688

PATIENT
  Age: 74 Year
  Sex: Female
  Weight: 56.246 kg

DRUGS (4)
  1. BROMDAY [Concomitant]
  2. ANTIBIOTICS [Concomitant]
  3. DUREZOL [Suspect]
     Indication: CATARACT OPERATION
     Dosage: (OPHTHALMIC), (OPHTHALMIC)
     Route: 047
     Dates: start: 20111111
  4. DUREZOL [Suspect]
     Indication: CATARACT OPERATION
     Dosage: (OPHTHALMIC), (OPHTHALMIC)
     Route: 047
     Dates: end: 20120501

REACTIONS (2)
  - EYE OPERATION COMPLICATION [None]
  - MACULAR OEDEMA [None]
